FAERS Safety Report 4299114-9 (Version None)
Quarter: 2004Q1

REPORT INFORMATION
  Report Type: 
  Country: None (occurrence: None)
  Receive Date: 20040217
  Receipt Date: 20040202
  Transmission Date: 20041129
  Serious: Yes (Disabling)
  Sender: FDA-Public Use
  Company Number: K200301626

PATIENT
  Age: 64 Year
  Sex: Female

DRUGS (12)
  1. ALTACE [Suspect]
     Indication: HYPERTENSION
     Dosage: SEE IMAGE
     Route: 048
     Dates: start: 20020901, end: 20030201
  2. ALTACE [Suspect]
     Indication: HYPERTENSION
     Dosage: SEE IMAGE
     Route: 048
     Dates: start: 20030101
  3. ALTACE [Suspect]
     Indication: HYPERTENSION
     Dosage: SEE IMAGE
     Route: 048
     Dates: start: 20030618
  4. ARELIX (PIRETANIDE) TABLET, 1 TABLET [Suspect]
     Indication: HYPERTENSION
     Dosage: SEE IMAGE
     Route: 048
     Dates: start: 20020901, end: 20030201
  5. ARELIX (PIRETANIDE) TABLET, 1 TABLET [Suspect]
     Indication: HYPERTENSION
     Dosage: SEE IMAGE
     Route: 048
     Dates: start: 20031122
  6. CARVEDILOL [Concomitant]
  7. DILZEM ^GOEDECKE^ (DILTIAZEM HYDROCHCORIDE) [Concomitant]
  8. BLOPRESS (CANDESARTAN CILEXETIL) [Concomitant]
  9. METOPROLOL SUCCINATE [Concomitant]
  10. CONJUGATED ESTROGENS [Concomitant]
  11. DIGOXIN [Concomitant]
  12. BELOC-ZOC MITE (METOPROLOL SUCCINATE) [Concomitant]

REACTIONS (3)
  - COUGH [None]
  - DERMOGRAPHISM [None]
  - NEURODERMATITIS [None]
